FAERS Safety Report 4735137-0 (Version None)
Quarter: 2005Q3

REPORT INFORMATION
  Report Type: 
  Country: None (occurrence: None)
  Receive Date: 20050804
  Receipt Date: 20050712
  Transmission Date: 20060218
  Serious: Yes (Other)
  Sender: FDA-Public Use
  Company Number: USA040362580

PATIENT
  Age: 88 Year
  Sex: Female

DRUGS (10)
  1. EVISTA [Suspect]
     Indication: OSTEOPOROSIS
     Dosage: 60 MG DAY
     Dates: start: 19970101
  2. FORTEO [Suspect]
     Indication: OSTEOPOROSIS
     Dosage: 20 UG/1 DAY
     Dates: start: 20040701
  3. PROTONIX [Concomitant]
  4. SYNTHROID [Concomitant]
  5. OSCAL (CALCIUM CARBONATE) [Concomitant]
  6. TIAZAC [Concomitant]
  7. HYDROCHLOROTHIAZIDE [Concomitant]
  8. DIAMOX [Concomitant]
  9. ASPIRIN [Concomitant]
  10. MULTIVITAMINS NOS (MULTIVITAMINS NOS) [Concomitant]

REACTIONS (9)
  - ATRIAL FIBRILLATION [None]
  - CARDIAC VALVE DISEASE [None]
  - DYSPHONIA [None]
  - EYE DISORDER [None]
  - INJECTION SITE ERYTHEMA [None]
  - NASOPHARYNGITIS [None]
  - PHARMACEUTICAL PRODUCT COMPLAINT [None]
  - PNEUMONIA [None]
  - VISUAL DISTURBANCE [None]
